FAERS Safety Report 16450891 (Version 1)
Quarter: 2019Q2

REPORT INFORMATION
  Report Type: Spontaneous
  Country: US (occurrence: US)
  Receive Date: 20190509
  Receipt Date: 20190509
  Transmission Date: 20190711
  Serious: Yes (Death, Hospitalization)
  Sender: FDA-Public Use
  Company Number: None

PATIENT
  Age: 57 Year
  Sex: Female
  Weight: 63.5 kg

DRUGS (2)
  1. ARIMIDEX [Suspect]
     Active Substance: ANASTROZOLE
     Dates: end: 20190505
  2. APIXABAN [Concomitant]
     Active Substance: APIXABAN

REACTIONS (7)
  - Haemorrhage intracranial [None]
  - Brain oedema [None]
  - Brain compression [None]
  - Encephalopathy [None]
  - Hypertension [None]
  - Acidosis [None]
  - Alkalosis [None]

NARRATIVE: CASE EVENT DATE: 20190506
